FAERS Safety Report 13394091 (Version 4)
Quarter: 2017Q4

REPORT INFORMATION
  Report Type: Report from Study
  Country: US (occurrence: US)
  Receive Date: 20170401
  Receipt Date: 20171127
  Transmission Date: 20180320
  Serious: Yes (Hospitalization)
  Sender: FDA-Public Use
  Company Number: US-B.I. PHARMACEUTICALS,INC./RIDGEFIELD-2017-BI-017356

PATIENT
  Sex: Female

DRUGS (1)
  1. OFEV [Suspect]
     Active Substance: NINTEDANIB
     Indication: IDIOPATHIC PULMONARY FIBROSIS
     Route: 048
     Dates: start: 20170324

REACTIONS (15)
  - Infection [Unknown]
  - Diarrhoea [Unknown]
  - Productive cough [Unknown]
  - Dyspnoea [Unknown]
  - Postoperative wound infection [Unknown]
  - Increased tendency to bruise [Unknown]
  - Cough [Unknown]
  - Weight decreased [Unknown]
  - Multiple allergies [Unknown]
  - Haemorrhagic diathesis [Unknown]
  - Abdominal pain upper [Unknown]
  - Decreased appetite [Unknown]
  - Ageusia [Unknown]
  - Head discomfort [Unknown]
  - Sinusitis [Unknown]
